FAERS Safety Report 17949579 (Version 1)
Quarter: 2020Q2

REPORT INFORMATION
  Report Type: Other
  Country: NL (occurrence: SI)
  Receive Date: 20200626
  Receipt Date: 20200626
  Transmission Date: 20200714
  Serious: Yes (Death, Other)
  Sender: FDA-Public Use
  Company Number: SI-ASTELLAS-2020US021203

PATIENT
  Age: 73 Year
  Sex: Female

DRUGS (14)
  1. HYDROXYUREA. [Suspect]
     Active Substance: HYDROXYUREA
     Route: 065
  2. ANAGRELIDE. [Suspect]
     Active Substance: ANAGRELIDE HYDROCHLORIDE
     Indication: PRODUCT USED FOR UNKNOWN INDICATION
     Dosage: UNK UNK, UNKNOWN FREQ. (FOR 4 WEEKS)
     Route: 065
     Dates: start: 201603
  3. BINOCRIT [Suspect]
     Active Substance: ERYTHROPOIETIN
     Indication: ANAEMIA
     Dosage: UNK UNK, UNKNOWN FREQ. (30 OT, QW (30.000 IE WEEKLY))
     Route: 065
  4. CLOPIDOGREL [Concomitant]
     Active Substance: CLOPIDOGREL BISULFATE
     Indication: PRODUCT USED FOR UNKNOWN INDICATION
     Dosage: UNK UNK, UNKNOWN FREQ.
     Route: 065
  5. INTERFERON [Suspect]
     Active Substance: INTERFERON
     Dosage: UNK UNK, UNKNOWN FREQ. (3X5 WEEKLY)
     Route: 065
     Dates: start: 201609
  6. ARANESP [Concomitant]
     Active Substance: DARBEPOETIN ALFA
     Indication: PRODUCT USED FOR UNKNOWN INDICATION
     Dosage: UNK UNK, UNKNOWN FREQ.
     Route: 065
  7. TACROLIMUS SYSTEMIC [Suspect]
     Active Substance: TACROLIMUS
     Indication: ESSENTIAL THROMBOCYTHAEMIA
     Dosage: UNK UNK, UNKNOWN FREQ.
     Route: 065
  8. INTERFERON [Suspect]
     Active Substance: INTERFERON
     Indication: PRODUCT USED FOR UNKNOWN INDICATION
     Dosage: UNK UNK, UNKNOWN FREQ QW (3X3M WEEKLY)
     Route: 065
     Dates: start: 201607
  9. HYDROXYUREA. [Suspect]
     Active Substance: HYDROXYUREA
     Route: 065
  10. JAKAVI [RUXOLITINIB] [Suspect]
     Active Substance: RUXOLITINIB
     Indication: ESSENTIAL THROMBOCYTHAEMIA
     Route: 065
     Dates: start: 201902
  11. ANAGRELIDE. [Suspect]
     Active Substance: ANAGRELIDE HYDROCHLORIDE
     Dosage: UNK UNK, UNKNOWN FREQ.
     Route: 065
     Dates: start: 201609, end: 201702
  12. HYDROXYUREA. [Suspect]
     Active Substance: HYDROXYUREA
     Dosage: UNK UNK, UNKNOWN FREQ.
     Route: 065
     Dates: start: 201609, end: 201702
  13. THROMBOREDUCTIN [Concomitant]
     Indication: PRODUCT USED FOR UNKNOWN INDICATION
     Dosage: UNK UNK, UNKNOWN FREQ.
     Route: 065
  14. HYDROXYUREA. [Suspect]
     Active Substance: HYDROXYUREA
     Indication: PRODUCT USED FOR UNKNOWN INDICATION
     Route: 065
     Dates: start: 201505

REACTIONS (19)
  - Hepatitis B [Unknown]
  - Candida infection [Unknown]
  - Pneumonia [Fatal]
  - Cardiac failure [Unknown]
  - Depression [Unknown]
  - Coronavirus infection [Unknown]
  - Cytomegalovirus infection [Unknown]
  - Pneumocystis jirovecii pneumonia [Unknown]
  - Transient ischaemic attack [Unknown]
  - Bronchopulmonary aspergillosis [Unknown]
  - Epstein-Barr virus infection [Unknown]
  - Pancytopenia [Unknown]
  - Herpes simplex [Unknown]
  - Enterococcal infection [Unknown]
  - Hepatic failure [Unknown]
  - Anaemia [Unknown]
  - Acute respiratory distress syndrome [Fatal]
  - Laboratory test abnormal [Unknown]
  - Product use in unapproved indication [Unknown]

NARRATIVE: CASE EVENT DATE: 201609
